FAERS Safety Report 21450669 (Version 1)
Quarter: 2022Q4

REPORT INFORMATION
  Report Type: Spontaneous
  Country: US (occurrence: None)
  Receive Date: 20221012
  Receipt Date: 20221012
  Transmission Date: 20230112
  Serious: Yes (Hospitalization)
  Sender: FDA-Public Use
  Company Number: None

PATIENT
  Age: 46 Year
  Sex: Female
  Weight: 65 kg

DRUGS (1)
  1. ALBURX [Suspect]
     Active Substance: ALBUMIN HUMAN
     Indication: Cirrhosis alcoholic
     Dosage: FREQUENCY : AS NEEDED;?
     Route: 042
     Dates: start: 20211215

REACTIONS (4)
  - Swelling face [None]
  - Cough [None]
  - Back pain [None]
  - Rash [None]

NARRATIVE: CASE EVENT DATE: 20221012
